FAERS Safety Report 23693103 (Version 3)
Quarter: 2025Q1

REPORT INFORMATION
  Report Type: Spontaneous
  Country: DE (occurrence: DE)
  Receive Date: 20240401
  Receipt Date: 20250103
  Transmission Date: 20250409
  Serious: Yes (Life-Threatening, Other)
  Sender: PFIZER
  Company Number: None

PATIENT
  Sex: Female
  Weight: 71.2 kg

DRUGS (9)
  1. TAVOR (LORAZEPAM) [Suspect]
     Active Substance: LORAZEPAM
     Indication: Product used for unknown indication
     Dates: start: 2019
  2. OLANZAPINE [Suspect]
     Active Substance: OLANZAPINE
     Indication: Product used for unknown indication
     Dosage: UNK, 2X/DAY
  3. OLANZAPINE [Suspect]
     Active Substance: OLANZAPINE
     Dosage: 1-0-1 (MORNING. EVENING)
  4. PERAZINE DIMALONATE [Suspect]
     Active Substance: PERAZINE DIMALONATE
     Indication: Schizophrenia
     Dosage: 25 MG, 1X/DAY, 25MG-0-0
     Route: 048
     Dates: start: 1986
  5. AKINETON [Suspect]
     Active Substance: BIPERIDEN HYDROCHLORIDE
     Route: 048
  6. HALOPERIDOL [Suspect]
     Active Substance: HALOPERIDOL
     Indication: Ill-defined disorder
     Route: 048
     Dates: start: 1987
  7. HALOPERIDOL [Suspect]
     Active Substance: HALOPERIDOL
     Dates: start: 2019
  8. PROMETHAZINE [Concomitant]
     Active Substance: PROMETHAZINE HYDROCHLORIDE
     Indication: Restlessness
     Dosage: 100 MG, 1X/DAY, 0-1-1
     Route: 048
     Dates: start: 2023
  9. KNEIPP BALDRIAN [Concomitant]

REACTIONS (5)
  - Petit mal epilepsy [Not Recovered/Not Resolved]
  - Oculogyric crisis [Not Recovered/Not Resolved]
  - Epilepsy [Not Recovered/Not Resolved]
  - Vomiting [Not Recovered/Not Resolved]
  - Weight increased [Not Recovered/Not Resolved]
